FAERS Safety Report 16073807 (Version 13)
Quarter: 2021Q2

REPORT INFORMATION
  Report Type: Report from Study
  Country: CH (occurrence: CH)
  Receive Date: 20190314
  Receipt Date: 20210609
  Transmission Date: 20210716
  Serious: Yes (Other)
  Sender: FDA-Public Use
  Company Number: CH-INCYTE CORPORATION-2019IN002426

PATIENT

DRUGS (10)
  1. CANDESARTAN;HYDROCHLOROTHIAZIDE [Concomitant]
     Active Substance: CANDESARTAN CILEXETIL\HYDROCHLOROTHIAZIDE
     Indication: HYPERTONIA
     Dosage: 20.5 MG, QD
     Route: 065
  2. JAKAVI [Suspect]
     Active Substance: RUXOLITINIB
     Indication: POLYCYTHAEMIA VERA
     Dosage: DOSE 20, UNITS UNKNOWN
     Route: 065
     Dates: start: 20180924, end: 20181021
  3. ASPIRIN. [Concomitant]
     Active Substance: ASPIRIN
     Indication: PROPHYLAXIS
     Dosage: 100 MG, QD
     Route: 065
     Dates: start: 20180810
  4. JAKAVI [Suspect]
     Active Substance: RUXOLITINIB
     Dosage: DOSE 30, (UNITS UNSPECIFIED)
     Route: 065
     Dates: start: 20190704, end: 20201019
  5. VALTREX [Concomitant]
     Active Substance: VALACYCLOVIR HYDROCHLORIDE
     Indication: HERPES SIMPLEX
     Dosage: 500 MG, BID
     Route: 065
     Dates: start: 20180924
  6. CANDESARTANCILEXETIL/HYDROCHLOORTHIAZIDE SAND [Suspect]
     Active Substance: CANDESARTAN CILEXETIL\HYDROCHLOROTHIAZIDE
     Indication: HYPERTONIA
  7. JAKAVI [Suspect]
     Active Substance: RUXOLITINIB
     Dosage: DOSE 40 (UNITS UNSPECIFIED) UKN, UNK
     Route: 065
     Dates: start: 20181119, end: 20190703
  8. CANDESARTANCILEXETIL/HYDROCHLOORTHIAZIDE SAND [Suspect]
     Active Substance: CANDESARTAN CILEXETIL\HYDROCHLOROTHIAZIDE
     Indication: HYPERTENSION
     Dosage: 20.5 MG, QD ( 8/12.5 MG)
     Route: 065
  9. JAKAVI [Suspect]
     Active Substance: RUXOLITINIB
     Dosage: DOSE 30, UNITS UNKNOWN
     Route: 065
     Dates: start: 20181022, end: 20181118
  10. ASPIRIN. [Concomitant]
     Active Substance: ASPIRIN
     Indication: POLYCYTHAEMIA VERA

REACTIONS (6)
  - Night sweats [Recovered/Resolved]
  - Erectile dysfunction [Not Recovered/Not Resolved]
  - Oesophageal candidiasis [Recovered/Resolved]
  - Decreased appetite [Recovered/Resolved]
  - Helicobacter infection [Recovered/Resolved]
  - Anaemia [Not Recovered/Not Resolved]

NARRATIVE: CASE EVENT DATE: 20181030
